FAERS Safety Report 6960213-1 (Version None)
Quarter: 2010Q3

REPORT INFORMATION
  Report Type: 
  Country: None (occurrence: None)
  Receive Date: 20100901
  Receipt Date: 20100825
  Transmission Date: 20110219
  Serious: Yes (Other)
  Sender: FDA-Public Use
  Company Number: US-WYE-H16435710

PATIENT
  Sex: Female

DRUGS (1)
  1. IBUPROFEN [Suspect]
     Indication: PAIN
     Dosage: 30 TO 50 IBUPROFEN A DAY
     Route: 048
     Dates: start: 19960101

REACTIONS (4)
  - CONDITION AGGRAVATED [None]
  - GASTROINTESTINAL ULCER HAEMORRHAGE [None]
  - OVERDOSE [None]
  - PAIN [None]
